FAERS Safety Report 8977701 (Version 8)
Quarter: 2013Q3

REPORT INFORMATION
  Report Type: Spontaneous
  Country: US (occurrence: US)
  Receive Date: 20121220
  Receipt Date: 20130930
  Transmission Date: 20140515
  Serious: Yes (Hospitalization, Other)
  Sender: FDA-Public Use
  Company Number: US-ROCHE-782071

PATIENT
  Age: 18 Year
  Sex: Female
  Weight: 59.02 kg

DRUGS (2)
  1. ACCUTANE [Suspect]
     Indication: ACNE
     Dosage: 40 MG AM AND 20 MG HS
     Route: 048
     Dates: start: 19990615, end: 19991115
  2. ADVIL [Concomitant]

REACTIONS (17)
  - Crohn^s disease [Unknown]
  - Colitis ulcerative [Unknown]
  - Colitis [Unknown]
  - Emotional distress [Unknown]
  - Depression [Unknown]
  - Large intestine polyp [Unknown]
  - Crohn^s disease [Unknown]
  - Anal fistula [Unknown]
  - Inflammatory bowel disease [Unknown]
  - Suicide attempt [Unknown]
  - Lip dry [Unknown]
  - Dry eye [Unknown]
  - Asthma [Unknown]
  - Cough [Unknown]
  - Dyspnoea [Unknown]
  - Chest pain [Unknown]
  - Hordeolum [Unknown]
